FAERS Safety Report 4388086-4 (Version None)
Quarter: 2004Q2

REPORT INFORMATION
  Report Type: 
  Country: None (occurrence: None)
  Receive Date: 20040629
  Receipt Date: 20040629
  Transmission Date: 20050107
  Serious: Yes (Other)
  Sender: FDA-Public Use
  Company Number: None

PATIENT
  Age: 37 Year
  Sex: Female
  Weight: 56.6996 kg

DRUGS (6)
  1. DURAGESIC [Suspect]
     Indication: ANALGESIC EFFECT
     Dosage: 1 EVERY 72 HOURS
  2. DURAGESIC [Suspect]
  3. DURAGESIC [Suspect]
  4. DURAGESIC [Suspect]
  5. HYDROCODONE/ACETAMINOPHEN [Concomitant]
  6. CATAFLAM [Concomitant]

REACTIONS (4)
  - DRUG INEFFECTIVE [None]
  - DRUG WITHDRAWAL SYNDROME [None]
  - MEDICATION ERROR [None]
  - PHARMACEUTICAL PRODUCT COMPLAINT [None]
